FAERS Safety Report 21442000 (Version 1)
Quarter: 2022Q4

REPORT INFORMATION
  Report Type: Spontaneous
  Country: US (occurrence: US)
  Receive Date: 20221011
  Receipt Date: 20221011
  Transmission Date: 20230112
  Serious: No
  Sender: FDA-Public Use
  Company Number: US-Sprout Pharmaceuticals, Inc.-2022SP000058

PATIENT
  Age: 36 Year
  Sex: Female

DRUGS (2)
  1. ADDYI [Suspect]
     Active Substance: FLIBANSERIN
     Indication: Product used for unknown indication
     Route: 048
     Dates: start: 202111
  2. ADDYI [Suspect]
     Active Substance: FLIBANSERIN
     Dosage: TEMPORARILY DISCONTINUED AND RESTARTED
     Route: 048
     Dates: start: 20220104

REACTIONS (2)
  - COVID-19 [Recovered/Resolved]
  - Therapeutic product effect decreased [Not Recovered/Not Resolved]

NARRATIVE: CASE EVENT DATE: 20211201
